FAERS Safety Report 25142074 (Version 2)
Quarter: 2025Q4

REPORT INFORMATION
  Report Type: Spontaneous
  Country: EU (occurrence: EU)
  Receive Date: 20250331
  Receipt Date: 20251224
  Transmission Date: 20260118
  Serious: Yes (Other)
  Sender: SHIONOGI
  Company Number: EU-shionogi-202500003405

PATIENT
  Age: 39 Year
  Sex: Female

DRUGS (9)
  1. CEFIDEROCOL [Suspect]
     Active Substance: CEFIDEROCOL
     Indication: Lung abscess
     Dosage: UNKNOWN
  2. CEFIDEROCOL [Suspect]
     Active Substance: CEFIDEROCOL
     Indication: Acinetobacter infection
  3. CASPOFUNGIN [Suspect]
     Active Substance: CASPOFUNGIN
     Indication: Lung abscess
     Dosage: UNKNOWN
  4. CASPOFUNGIN [Suspect]
     Active Substance: CASPOFUNGIN
     Indication: Pneumonia
  5. VANCOMYCIN [Suspect]
     Active Substance: VANCOMYCIN
     Indication: Lung abscess
     Dosage: UNKNOWN
     Route: 048
  6. METRONIDAZOLE [Suspect]
     Active Substance: METRONIDAZOLE
     Indication: Lung abscess
     Dosage: UNKNOWN
  7. COLISTIN [Suspect]
     Active Substance: COLISTIN
     Indication: Lung abscess
     Dosage: UNKNOWN
  8. COLISTIN [Suspect]
     Active Substance: COLISTIN
     Indication: Pneumonia
  9. TIGECYCLINE [Suspect]
     Active Substance: TIGECYCLINE
     Indication: Product used for unknown indication

REACTIONS (4)
  - Encephalitis [Recovering/Resolving]
  - Myoclonus [Recovering/Resolving]
  - Coagulopathy [Recovering/Resolving]
  - Lipase increased [Unknown]
